FAERS Safety Report 23013898 (Version 1)
Quarter: 2023Q4

REPORT INFORMATION
  Report Type: Report from Study
  Country: US (occurrence: US)
  Receive Date: 20231001
  Receipt Date: 20231001
  Transmission Date: 20240109
  Serious: Yes (Death)
  Sender: FDA-Public Use
  Company Number: US-JNJFOC-20230963204

PATIENT
  Age: 26 Year
  Sex: Male
  Weight: 83.536 kg

DRUGS (10)
  1. SPRAVATO [Suspect]
     Active Substance: ESKETAMINE
     Indication: Depression
     Dosage: ^84 MG, 5 TOTAL DOSES^
     Dates: start: 20230705, end: 20230721
  2. SPRAVATO [Suspect]
     Active Substance: ESKETAMINE
     Indication: Bipolar I disorder
  3. SPRAVATO [Suspect]
     Active Substance: ESKETAMINE
     Indication: Anxiety disorder
  4. SPRAVATO [Suspect]
     Active Substance: ESKETAMINE
     Indication: Major depression
  5. SPRAVATO [Suspect]
     Active Substance: ESKETAMINE
     Indication: Suicidal ideation
  6. LURASIDONE [Concomitant]
     Active Substance: LURASIDONE
     Indication: Bipolar disorder
     Route: 048
  7. LEVOMEFOLIC ACID [Concomitant]
     Active Substance: LEVOMEFOLIC ACID
     Indication: Blood folate decreased
     Route: 048
  8. DOCONEXENT\ICOSAPENT [Concomitant]
     Active Substance: DOCONEXENT\ICOSAPENT
     Indication: Type V hyperlipidaemia
     Dosage: 300-1000MG
     Route: 048
     Dates: start: 20230120
  9. DIVALPROEX SODIUM [Concomitant]
     Active Substance: DIVALPROEX SODIUM
     Indication: Bipolar disorder
     Route: 048
  10. BUPROPION HYDROCHLORIDE [Concomitant]
     Active Substance: BUPROPION HYDROCHLORIDE
     Indication: Depression
     Route: 048

REACTIONS (2)
  - Completed suicide [Fatal]
  - Drug screen positive [Unknown]

NARRATIVE: CASE EVENT DATE: 20230705
